FAERS Safety Report 5286532-5 (Version None)
Quarter: 2007Q2

REPORT INFORMATION
  Report Type: 
  Country: None (occurrence: None)
  Receive Date: 20070404
  Receipt Date: 20070312
  Transmission Date: 20071010
  Serious: Yes (Other)
  Sender: FDA-Public Use
  Company Number: US-SANOFI-SYNTHELABO-A03200702203

PATIENT
  Sex: Female

DRUGS (19)
  1. LISINOPRIL [Concomitant]
     Dosage: UNK
     Route: 048
  2. XANAX XR [Concomitant]
     Dosage: UNK
     Route: 048
  3. HYDROCHLOROTHIAZIDE [Concomitant]
     Dosage: UNK
     Route: 048
  4. CLARINEX [Concomitant]
     Dosage: UNK
     Route: 048
  5. ZOLOFT [Concomitant]
     Dosage: UNK
     Route: 048
  6. DIFLUCAN [Concomitant]
     Dosage: UNK
     Route: 048
  7. REBETOL [Concomitant]
     Dosage: UNK
     Route: 048
  8. PEG-INTRON [Concomitant]
     Dosage: UNK
     Route: 065
  9. PROMETHAZINE [Concomitant]
     Dosage: UNK
     Route: 048
  10. BUTALIBITAL/APAP/CAFFEINE [Concomitant]
     Dosage: UNK
     Route: 065
  11. CLONIDINE [Concomitant]
     Dosage: UNK
     Route: 048
  12. CLONIDINE [Concomitant]
     Dosage: UNK
     Route: 048
  13. NEURONTIN [Concomitant]
     Dosage: UNK
     Route: 048
  14. EFFEXOR XR [Concomitant]
     Dosage: UNK
     Route: 048
  15. RIBAVIRIN [Concomitant]
     Dosage: UNK
     Route: 065
  16. INFERGEN [Concomitant]
     Dosage: UNK
     Route: 065
  17. AMBIEN [Suspect]
     Indication: INSOMNIA
     Route: 048
     Dates: end: 20051017
  18. AMBIEN [Suspect]
     Route: 048
     Dates: start: 20051017, end: 20060301
  19. AMBIEN [Suspect]
     Dosage: UNK
     Route: 048

REACTIONS (21)
  - AMNESIA [None]
  - BACK PAIN [None]
  - BALANCE DISORDER [None]
  - COGNITIVE DISORDER [None]
  - CONTUSION [None]
  - DIZZINESS [None]
  - EATING DISORDER [None]
  - EXCORIATION [None]
  - FALL [None]
  - HALLUCINATION, VISUAL [None]
  - HEADACHE [None]
  - MUSCULOSKELETAL STIFFNESS [None]
  - NAUSEA [None]
  - PAIN [None]
  - PERIORBITAL HAEMATOMA [None]
  - ROAD TRAFFIC ACCIDENT [None]
  - SALIVARY HYPERSECRETION [None]
  - SLEEP WALKING [None]
  - SPEECH DISORDER [None]
  - SYNCOPE [None]
  - VISUAL DISTURBANCE [None]
